FAERS Safety Report 4389945-9 (Version None)
Quarter: 2004Q2

REPORT INFORMATION
  Report Type: 
  Country: None (occurrence: None)
  Receive Date: 20040630
  Receipt Date: 20040615
  Transmission Date: 20050107
  Serious: Yes (Other)
  Sender: FDA-Public Use
  Company Number: JP-JNJFOC-20040605697

PATIENT
  Age: 68 Year
  Sex: Male

DRUGS (10)
  1. FENTANYL [Suspect]
     Indication: CANCER PAIN
     Dosage: 2.5 MG, 1 IN 72 HOUR, TRANSDERMAL
     Route: 062
     Dates: start: 20040513
  2. DOCETAXEL HYDRATE (DOCETAXEL) [Suspect]
     Indication: NEOPLASM MALIGNANT
     Dosage: 80 MG, INTRAVENOUS DRIP
     Route: 041
     Dates: start: 20040514, end: 20040514
  3. NEDAPLATIN (NEDAPLATIN) [Suspect]
     Indication: NEOPLASM MALIGNANT
     Dosage: 27 MG, INTRAVENOUS DRIP
     Route: 041
     Dates: start: 20040514, end: 20040516
  4. FLUOROURACIL [Suspect]
     Indication: NEOPLASM MALIGNANT
     Dosage: 800 MG, INTRAVENOUS DRIP
     Route: 041
     Dates: start: 20040514, end: 20040519
  5. SODIUM PICOSULFATE [Concomitant]
  6. HYDROCORTISONE SODIUM SUCCINATE [Concomitant]
  7. GRANISETRON HYDROCHLORIDE [Concomitant]
  8. MORPHINE HYDROCHLORIDE [Concomitant]
  9. CARBOCISTEINE [Concomitant]
  10. ELASE [Concomitant]

REACTIONS (5)
  - HAEMATOCRIT DECREASED [None]
  - HAEMOGLOBIN DECREASED [None]
  - RED BLOOD CELL COUNT DECREASED [None]
  - WHITE BLOOD CELL COUNT DECREASED [None]
  - WHITE BLOOD CELL COUNT INCREASED [None]
